FAERS Safety Report 16189581 (Version 1)
Quarter: 2019Q2

REPORT INFORMATION
  Report Type: Spontaneous
  Country: FR (occurrence: FR)
  Receive Date: 20190412
  Receipt Date: 20190412
  Transmission Date: 20190711
  Serious: Yes (Hospitalization, Other)
  Sender: FDA-Public Use
  Company Number: FR-VERTEX PHARMACEUTICALS-2019-003179

PATIENT
  Age: 20 Year
  Sex: Female
  Weight: 54 kg

DRUGS (14)
  1. UVEDOSE [Concomitant]
     Active Substance: CHOLECALCIFEROL
  2. EUROBIOL                           /00014701/ [Concomitant]
  3. VITAMINE A [Concomitant]
     Active Substance: RETINOL
  4. URSOLVAN 200 [Concomitant]
     Active Substance: URSODIOL
  5. ORKAMBI [Suspect]
     Active Substance: IVACAFTOR\LUMACAFTOR
     Indication: CYSTIC FIBROSIS
     Route: 048
  6. NEBCINE [Suspect]
     Active Substance: TOBRAMYCIN
     Indication: LUNG INFECTION
     Route: 042
  7. BRICANYL [Concomitant]
     Active Substance: TERBUTALINE SULFATE
  8. PULMOZYME [Concomitant]
     Active Substance: DORNASE ALFA
  9. SYMBICORT [Concomitant]
     Active Substance: BUDESONIDE\FORMOTEROL FUMARATE DIHYDRATE
     Route: 055
  10. BETASELEN [Concomitant]
  11. VITAMIN K [Concomitant]
     Active Substance: PHYTONADIONE
  12. ZITHROMAX [Concomitant]
     Active Substance: AZITHROMYCIN DIHYDRATE
  13. MOPRAL                             /00661201/ [Concomitant]
     Active Substance: OMEPRAZOLE SODIUM
  14. TAZOCILLINE [Suspect]
     Active Substance: PIPERACILLIN SODIUM\TAZOBACTAM SODIUM
     Indication: LUNG INFECTION
     Route: 042

REACTIONS (2)
  - Myalgia [Recovered/Resolved]
  - Rhabdomyolysis [Recovered/Resolved]

NARRATIVE: CASE EVENT DATE: 20170531
